FAERS Safety Report 23728089 (Version 2)
Quarter: 2024Q2

REPORT INFORMATION
  Report Type: Spontaneous
  Country: FR (occurrence: FR)
  Receive Date: 20240410
  Receipt Date: 20240419
  Transmission Date: 20240716
  Serious: Yes (Other)
  Sender: FDA-Public Use
  Company Number: FR-MEDACSAS-2024000047

PATIENT
  Age: 84 Year
  Sex: Male
  Weight: 74 kg

DRUGS (10)
  1. DAPTOMYCIN [Suspect]
     Active Substance: DAPTOMYCIN
     Indication: Antibiotic therapy
     Dosage: 700 MILLIGRAM, QD
     Dates: start: 20221215
  2. ROSUVASTATIN [Concomitant]
     Active Substance: ROSUVASTATIN
     Dosage: 5MG TAB (0-0-1)
  3. AMIODARONE [Concomitant]
     Active Substance: AMIODARONE
     Dosage: 200MG TAB (1-0-0)
  4. SACUBITRIL\VALSARTAN [Concomitant]
     Active Substance: SACUBITRIL\VALSARTAN
     Dosage: 48.6/51.4 MG TAB (1-0-1)
  5. LANSOPRAZOLE [Concomitant]
     Active Substance: LANSOPRAZOLE
     Dosage: 15MG TAB (0-0-1)
  6. APIXABAN [Concomitant]
     Active Substance: APIXABAN
     Dosage: 5MG TAB (0-0-1)
  7. FUROSEMIDE [Concomitant]
     Active Substance: FUROSEMIDE
     Dosage: 40MG TAB (1-0-0)
  8. ASPIRIN [Concomitant]
     Active Substance: ASPIRIN
     Dosage: 160MG PACKET (0-1-0)
  9. CEFEPIME [Concomitant]
     Active Substance: CEFEPIME HYDROCHLORIDE
     Indication: Antibiotic therapy
     Dosage: 2 GRAM, Q8H
     Dates: start: 20221215
  10. BISOPROLOL [Concomitant]
     Active Substance: BISOPROLOL\BISOPROLOL FUMARATE
     Dosage: 2.5MG TAB (1-0-0)

REACTIONS (2)
  - Eosinophilic pneumonia [Unknown]
  - Product use in unapproved indication [Unknown]

NARRATIVE: CASE EVENT DATE: 20221215
